FAERS Safety Report 6475329-6 (Version None)
Quarter: 2009Q4

REPORT INFORMATION
  Report Type: 
  Country: None (occurrence: None)
  Receive Date: 20091204
  Receipt Date: 20090422
  Transmission Date: 20100525
  Serious: Yes (Hospitalization, Other)
  Sender: FDA-Public Use
  Company Number: US-ELI_LILLY_AND_COMPANY-US200904001550

PATIENT
  Sex: Female
  Weight: 97.506 kg

DRUGS (10)
  1. FORTEO [Suspect]
     Indication: OSTEOPOROSIS
     Dosage: 20 UG, DAILY (1/D)
     Dates: start: 20080601
  2. FORTEO [Suspect]
     Dosage: UNK, UNK
     Dates: start: 20080601
  3. NORVASC [Concomitant]
  4. REQUIP [Concomitant]
  5. OXYBUTYNIN CHLORIDE [Concomitant]
  6. LIPITOR [Concomitant]
  7. NEURONTIN [Concomitant]
  8. POTASSIUM [Concomitant]
  9. ASPIRIN [Concomitant]
  10. VITAMIN D [Concomitant]

REACTIONS (5)
  - CARDIAC PACEMAKER REPLACEMENT [None]
  - PAIN [None]
  - ROAD TRAFFIC ACCIDENT [None]
  - SUBARACHNOID HAEMORRHAGE [None]
  - THROMBOSIS [None]
